FAERS Safety Report 19140723 (Version 1)
Quarter: 2021Q2

REPORT INFORMATION
  Report Type: Spontaneous
  Country: US (occurrence: US)
  Receive Date: 20210415
  Receipt Date: 20210415
  Transmission Date: 20210717
  Serious: Yes (Other)
  Sender: FDA-Public Use
  Company Number: US-35507-2021-04514

PATIENT
  Age: 74 Year
  Sex: Female

DRUGS (3)
  1. SIMVASTATIN. [Suspect]
     Active Substance: SIMVASTATIN
     Indication: PRODUCT USED FOR UNKNOWN INDICATION
     Dosage: UNK
     Route: 065
  2. PENICILLIN NOS [Concomitant]
     Active Substance: PENICILLIN
     Indication: PRODUCT USED FOR UNKNOWN INDICATION
     Dosage: UNK
     Route: 065
  3. PRAVASTATIN. [Suspect]
     Active Substance: PRAVASTATIN
     Indication: PRODUCT USED FOR UNKNOWN INDICATION
     Dosage: UNK
     Route: 065

REACTIONS (2)
  - Drug hypersensitivity [Unknown]
  - Myalgia [Unknown]
